FAERS Safety Report 13648488 (Version 1)
Quarter: 2017Q2

REPORT INFORMATION
  Report Type: Spontaneous
  Country: DE (occurrence: DE)
  Receive Date: 20170613
  Receipt Date: 20170613
  Transmission Date: 20170830
  Serious: Yes (Other)
  Sender: FDA-Public Use
  Company Number: DE-PFIZER INC-2017253592

PATIENT

DRUGS (2)
  1. LANTAREL [Suspect]
     Active Substance: METHOTREXATE SODIUM
     Dosage: 15 MG, UNK
     Dates: start: 201704
  2. LANTAREL [Suspect]
     Active Substance: METHOTREXATE SODIUM
     Indication: EYE DISORDER
     Dosage: 10 MG, UNK
     Dates: start: 2016

REACTIONS (2)
  - Skin cancer [Unknown]
  - Product use in unapproved indication [Unknown]

NARRATIVE: CASE EVENT DATE: 2016
